FAERS Safety Report 24464520 (Version 1)
Quarter: 2024Q4

REPORT INFORMATION
  Report Type: Report from Study
  Country: US (occurrence: US)
  Receive Date: 20241018
  Receipt Date: 20241018
  Transmission Date: 20250114
  Serious: No
  Sender: ROCHE
  Company Number: US-ROCHE-3499500

PATIENT
  Age: 85 Year
  Sex: Female
  Weight: 40.82 kg

DRUGS (3)
  1. XOLAIR [Suspect]
     Active Substance: OMALIZUMAB
     Indication: Asthma
     Route: 058
  2. XOLAIR [Suspect]
     Active Substance: OMALIZUMAB
     Indication: Bronchopulmonary aspergillosis allergic
  3. ALBUTEROL [Concomitant]
     Active Substance: ALBUTEROL

REACTIONS (3)
  - Condition aggravated [Unknown]
  - Malaise [Unknown]
  - Immunodeficiency [Unknown]
